FAERS Safety Report 8803379 (Version 1)
Quarter: 2012Q4

REPORT INFORMATION
  Report Type: 
  Country: TW (occurrence: TW)
  Receive Date: 20120924
  Receipt Date: 20120924
  Transmission Date: 20130627
  Serious: Yes (Other)
  Sender: FDA-Public Use
  Company Number: TW-PFIZER INC-2012228879

PATIENT
  Age: 49 Year
  Sex: Female

DRUGS (5)
  1. PREMARIN [Suspect]
     Indication: MENOPAUSAL SYMPTOMS
     Dosage: UNK
     Route: 048
  2. PREMARIN [Suspect]
     Dosage: 1 DF, 1x/day, at bed time
     Route: 048
     Dates: start: 2011, end: 20120912
  3. CONJUGATED ESTROGENS [Suspect]
     Dosage: 1 DF, 1x/day
  4. CONJUGATED ESTROGENS [Suspect]
     Dosage: UNK
     Dates: end: 2011
  5. MEDROXYPROGESTERONE ACETATE [Concomitant]
     Dosage: 2.5 mg, 1x/day
     Route: 048

REACTIONS (8)
  - Postmenopausal haemorrhage [Unknown]
  - Gastric ulcer [Unknown]
  - Blood pressure increased [Recovered/Resolved]
  - Diarrhoea [Recovered/Resolved]
  - Abdominal pain [Unknown]
  - Poor quality sleep [Recovered/Resolved]
  - Abdominal pain upper [Recovered/Resolved]
  - Breast tenderness [Unknown]
